FAERS Safety Report 9520885 (Version 1)
Quarter: 2013Q1

REPORT INFORMATION
  Report Type: Spontaneous
  Country: US (occurrence: None)
  Receive Date: 20130305
  Receipt Date: 20130305
  Transmission Date: 20140127
  Serious: Yes (Other)
  Sender: FDA-Public Use
  Company Number: 163-21880-12012442

PATIENT
  Age: 78 Year
  Sex: Male

DRUGS (1)
  1. REVLIMID (LENALIDOMIDE) (25 MILLIGRAM, CAPSULES) [Suspect]
     Indication: PLASMA CELL MYELOMA
     Dosage: QD X 21 DAYS ON, THEN 7 DAYS OFF
     Route: 048
     Dates: start: 20120112, end: 20120119

REACTIONS (3)
  - Hypersensitivity [None]
  - Rash generalised [None]
  - Oedema peripheral [None]
